FAERS Safety Report 20208637 (Version 4)
Quarter: 2022Q3

REPORT INFORMATION
  Report Type: Report from Study
  Country: US (occurrence: US)
  Receive Date: 20211220
  Receipt Date: 20220707
  Transmission Date: 20221027
  Serious: Yes (Other)
  Sender: FDA-Public Use
  Company Number: US-INCYTE CORPORATION-2018IN010158

PATIENT

DRUGS (22)
  1. JAKAFI [Suspect]
     Active Substance: RUXOLITINIB
     Indication: Myelofibrosis
     Dosage: 10 MG, BID
     Route: 065
     Dates: start: 20140702
  2. ALLOPURINOL [Concomitant]
     Active Substance: ALLOPURINOL
     Indication: Prophylaxis
     Dosage: 300 MG, QD
     Route: 048
     Dates: start: 20070118
  3. ASPIRIN [Concomitant]
     Active Substance: ASPIRIN
     Indication: Prophylaxis
     Dosage: 81 MILLIGRAM, QD
     Route: 065
     Dates: start: 2003, end: 2017
  4. ASPIRIN [Concomitant]
     Active Substance: ASPIRIN
     Indication: Silent myocardial infarction
     Dosage: 325 MILLIGRAM, QD
     Route: 065
     Dates: start: 20170920, end: 20180627
  5. ASPIRIN [Concomitant]
     Active Substance: ASPIRIN
     Indication: Antiplatelet therapy
     Dosage: 81 MG, QD
     Route: 065
     Dates: start: 20180627
  6. LEXAPRO [Concomitant]
     Active Substance: ESCITALOPRAM OXALATE
     Indication: Cognitive disorder
     Dosage: 10 MG, QD
     Route: 065
     Dates: start: 20170920
  7. FLONASE [Concomitant]
     Active Substance: FLUTICASONE PROPIONATE
     Indication: Seasonal allergy
     Dosage: 50 MICROGRAM, PRN
     Route: 065
     Dates: start: 20131009
  8. METOPROLOL SUCCINATE [Concomitant]
     Active Substance: METOPROLOL SUCCINATE
     Indication: Palpitations
     Dosage: 25 MG, QD
     Route: 065
     Dates: start: 20161207
  9. IMODIUM [Concomitant]
     Active Substance: LOPERAMIDE HYDROCHLORIDE
     Indication: Diarrhoea
     Dosage: UNK MG, PRN (AS NEEDED)
     Route: 065
     Dates: start: 20080814, end: 20140730
  10. ADVIL [Concomitant]
     Active Substance: IBUPROFEN
     Indication: Muscle spasms
     Dosage: UNK MG, OTHER
     Route: 065
     Dates: start: 20140716, end: 20140730
  11. VALGANCICLOVIR [Concomitant]
     Active Substance: VALGANCICLOVIR
     Indication: Cytomegalovirus infection
     Dosage: 450 MILLIGRAM, QD
     Route: 065
     Dates: start: 20180721, end: 20180912
  12. TRAMADOL [Concomitant]
     Active Substance: TRAMADOL
     Indication: Pain
     Dosage: 50 MILLIGRAM
     Route: 065
     Dates: start: 20200729, end: 20200729
  13. SHINGRIX [Concomitant]
     Active Substance: RECOMBINANT VARICELLA ZOSTER VIRUS (VZV) GLYCOPROTEIN E
     Indication: Prophylaxis
     Dosage: 50 MICROGRAM
     Route: 065
     Dates: start: 20200212, end: 20200212
  14. SHINGRIX [Concomitant]
     Active Substance: RECOMBINANT VARICELLA ZOSTER VIRUS (VZV) GLYCOPROTEIN E
     Dosage: 50 MICROGRAM
     Route: 065
     Dates: start: 20200629, end: 20200629
  15. COVID-19 VACCINE [Concomitant]
     Indication: Prophylaxis
     Dosage: UNK ML (DOSE 1)
     Route: 065
     Dates: start: 20210130, end: 20210130
  16. COVID-19 VACCINE [Concomitant]
     Dosage: UNK ML (DOSE 2)
     Route: 065
     Dates: start: 20210219, end: 20210219
  17. COVID-19 VACCINE [Concomitant]
     Dosage: UNK ML (BOOSTER DOSE)
     Route: 065
     Dates: start: 20211228, end: 20211228
  18. NAVITOCLAX [Concomitant]
     Active Substance: NAVITOCLAX
     Indication: Myelofibrosis
     Dosage: 50 MILLIGRAM, BID
     Route: 065
     Dates: start: 20180711, end: 20200717
  19. NAVITOCLAX [Concomitant]
     Active Substance: NAVITOCLAX
     Dosage: 100 MILLIGRAM, BID
     Route: 065
     Dates: start: 20200718, end: 20200724
  20. NAVITOCLAX [Concomitant]
     Active Substance: NAVITOCLAX
     Dosage: 200 MILLIGRAM, BID
     Route: 065
     Dates: start: 20180725, end: 20180731
  21. NAVITOCLAX [Concomitant]
     Active Substance: NAVITOCLAX
     Dosage: 300 MILLIGRAM, BID
     Route: 065
     Dates: start: 20180801, end: 20181120
  22. NAVITOCLAX [Concomitant]
     Active Substance: NAVITOCLAX
     Dosage: 200 MILLIGRAM, BID
     Route: 065
     Dates: start: 20181126

REACTIONS (31)
  - Thrombocytopenia [Recovered/Resolved]
  - Thrombocytopenia [Not Recovered/Not Resolved]
  - Thrombocytopenia [Recovered/Resolved]
  - Neutropenia [Recovered/Resolved]
  - Thrombocytopenia [Not Recovered/Not Resolved]
  - Leukopenia [Not Recovered/Not Resolved]
  - Leukopenia [Recovered/Resolved]
  - Skin cancer [Recovered/Resolved]
  - Thrombocytopenia [Not Recovered/Not Resolved]
  - Thrombocytopenia [Recovered/Resolved]
  - Thrombocytopenia [Not Recovered/Not Resolved]
  - Neutropenia [Recovered/Resolved]
  - Mucosal inflammation [Recovered/Resolved]
  - Mouth ulceration [Not Recovered/Not Resolved]
  - Hypertransaminasaemia [Recovered/Resolved]
  - Oral herpes [Recovered/Resolved]
  - Actinic keratosis [Not Recovered/Not Resolved]
  - Stomatitis [Not Recovered/Not Resolved]
  - Fatigue [Recovered/Resolved]
  - Pain in extremity [Recovered/Resolved]
  - Joint swelling [Recovered/Resolved]
  - Tenderness [Recovered/Resolved]
  - Peripheral swelling [Recovered/Resolved]
  - Skin laceration [Recovered/Resolved]
  - Erythema [Recovered/Resolved]
  - Arthralgia [Recovered/Resolved]
  - Disturbance in attention [Recovered/Resolved]
  - Fatigue [Recovered/Resolved]
  - Skin lesion [Recovering/Resolving]
  - Diarrhoea [Not Recovered/Not Resolved]
  - Headache [Recovered/Resolved]

NARRATIVE: CASE EVENT DATE: 20180822
